FAERS Safety Report 5070486-0 (Version None)
Quarter: 2006Q3

REPORT INFORMATION
  Report Type: 
  Country: None (occurrence: None)
  Receive Date: 20060804
  Receipt Date: 20060725
  Transmission Date: 20061208
  Serious: Yes (Death)
  Sender: FDA-Public Use
  Company Number: PL-ABBOTT-06P-129-0338941-00

PATIENT
  Age: 34 Year
  Sex: Male

DRUGS (4)
  1. RITONAVIR [Suspect]
     Indication: HIV INFECTION
     Dosage: NOT REPORTED
  2. ZYDOVUDINE [Suspect]
     Indication: HIV INFECTION
     Dosage: NOT REPORTED
  3. LAMIVUDINE [Suspect]
     Indication: HIV INFECTION
     Dosage: NOT REPORTED
  4. SAQUINAVIR [Suspect]
     Indication: HIV INFECTION
     Dosage: NOT REPORTED

REACTIONS (3)
  - METASTASES TO LIVER [None]
  - METASTASES TO LYMPH NODES [None]
  - SMALL CELL LUNG CANCER STAGE UNSPECIFIED [None]
